FAERS Safety Report 10389879 (Version 1)
Quarter: 2014Q3

REPORT INFORMATION
  Report Type: Spontaneous
  Country: DE (occurrence: None)
  Receive Date: 20140813
  Receipt Date: 20140813
  Transmission Date: 20150326
  Serious: Yes (Death)
  Sender: FDA-Public Use
  Company Number: IMP_07787_2014

PATIENT
  Age: 21 Year
  Sex: Female

DRUGS (5)
  1. VALPROIC ACID (VALPROIC ACID) [Suspect]
     Active Substance: VALPROIC ACID
     Indication: PARTIAL SEIZURES
     Dosage: DF
  2. CLOBAZAM [Concomitant]
     Active Substance: CLOBAZAM
  3. PHENYTOIN. [Concomitant]
     Active Substance: PHENYTOIN
  4. METOCLOPRAMIDE (METOCLOPRAMIDE) [Suspect]
     Active Substance: METOCLOPRAMIDE
     Indication: PRODUCT USED FOR UNKNOWN INDICATION
     Dosage: DF
  5. CHLORALHYDRATE [Suspect]
     Active Substance: CHLORAL HYDRATE
     Indication: PRODUCT USED FOR UNKNOWN INDICATION
     Dosage: DF

REACTIONS (2)
  - Drug interaction [None]
  - Hepatic failure [None]
